FAERS Safety Report 5979936-6 (Version None)
Quarter: 2008Q4

REPORT INFORMATION
  Report Type: 
  Country: None (occurrence: None)
  Receive Date: 20081205
  Receipt Date: 20081125
  Transmission Date: 20090506
  Serious: Yes (Death, Life-Threatening, Hospitalization)
  Sender: FDA-Public Use
  Company Number: US-PURDUE-USA_2008_0035614

PATIENT
  Age: 70 Year
  Sex: Male
  Weight: 56 kg

DRUGS (12)
  1. ASPIRIN [Concomitant]
  2. COLACE CAPSULES [Concomitant]
  3. LASIX [Concomitant]
  4. LISINOPRIL [Concomitant]
  5. MEGACE [Concomitant]
  6. MULTI-VITAMINS [Concomitant]
  7. MYLANTA                            /00108001/ [Concomitant]
  8. NITROGLYCERIN [Concomitant]
  9. CLOPIDOGREL BISULFATE [Concomitant]
  10. TYLENOL (CAPLET) [Concomitant]
  11. OXYCONTIN [Suspect]
     Indication: CANCER PAIN
     Dosage: 160 MG, DAILY
  12. OXYIR [Suspect]
     Indication: CANCER PAIN
     Dosage: 55 MG, DAILY

REACTIONS (5)
  - DISSEMINATED INTRAVASCULAR COAGULATION [None]
  - MALIGNANT NEOPLASM PROGRESSION [None]
  - MYOCARDIAL INFARCTION [None]
  - SEPSIS [None]
  - TRANSFUSION REACTION [None]
